FAERS Safety Report 7552233-3 (Version None)
Quarter: 2011Q2

REPORT INFORMATION
  Report Type: 
  Country: None (occurrence: None)
  Receive Date: 20110616
  Receipt Date: 20040427
  Transmission Date: 20111010
  Serious: Yes (Hospitalization)
  Sender: FDA-Public Use
  Company Number: PHHO2004JP06695

PATIENT

DRUGS (4)
  1. NORVASC [Concomitant]
     Dosage: 5 MG/DAY
     Dates: start: 20010426
  2. DOXAZOSIN MESYLATE [Concomitant]
     Dosage: UNK
     Dates: start: 20010626
  3. CANDESARTAN CILEXETIL [Concomitant]
     Dosage: 8 MG/DAY
     Dates: start: 20010319
  4. LOCHOLEST [Suspect]
     Indication: HYPERCHOLESTEROLAEMIA
     Dosage: 20 MG/DAY
     Route: 048
     Dates: start: 20010320

REACTIONS (5)
  - ENDOSCOPIC RETROGRADE CHOLANGIOPANCREATOGRAPHY [None]
  - JAUNDICE [None]
  - ABDOMINAL PAIN UPPER [None]
  - BLOOD AMYLASE INCREASED [None]
  - BILE DUCT STONE [None]
